FAERS Safety Report 16535302 (Version 11)
Quarter: 2020Q3

REPORT INFORMATION
  Report Type: Spontaneous
  Country: DE (occurrence: DE)
  Receive Date: 20190705
  Receipt Date: 20200806
  Transmission Date: 20201102
  Serious: Yes (Other)
  Sender: FDA-Public Use
  Company Number: DE-AUROBINDO-AUR-APL-2019-037677

PATIENT
  Sex: Female
  Weight: 46 kg

DRUGS (4)
  1. NOVAMINSULFON [Concomitant]
     Active Substance: METAMIZOLE
     Indication: PAIN
     Dosage: UNK
     Route: 048
     Dates: start: 20180804, end: 20180915
  2. LETROZOLE. [Suspect]
     Active Substance: LETROZOLE
     Indication: BREAST CANCER METASTATIC
     Dosage: 2.5 MILLIGRAM, ONCE A DAY
     Route: 048
     Dates: start: 20180528, end: 20180814
  3. CLEXANE [Concomitant]
     Active Substance: ENOXAPARIN SODIUM
     Indication: HAEMODILUTION
     Dosage: 40 MILLIGRAM, UNK
     Route: 048
     Dates: start: 20180804, end: 20180915
  4. KISQALI [Suspect]
     Active Substance: RIBOCICLIB
     Indication: BREAST CANCER METASTATIC
     Dosage: 600 MILLIGRAM, ONCE A DAY (SCHEMA 21 DAYS INTAKE, THAN 7 DAYS PAUSE )
     Route: 048
     Dates: start: 20180528, end: 20180728

REACTIONS (12)
  - Blood bilirubin increased [Unknown]
  - Ascites [Unknown]
  - Cholelithiasis [Unknown]
  - Liver function test abnormal [Recovered/Resolved]
  - Hepatic steatosis [Unknown]
  - Transaminases increased [Unknown]
  - Blood alkaline phosphatase increased [Unknown]
  - Nasopharyngitis [Recovered/Resolved]
  - Hepatic enzyme increased [Recovered/Resolved]
  - Inguinal hernia [Recovered/Resolved]
  - Concomitant disease aggravated [Unknown]
  - Drug-induced liver injury [Recovered/Resolved]

NARRATIVE: CASE EVENT DATE: 20180802
